FAERS Safety Report 9683989 (Version 1)
Quarter: 2013Q4

REPORT INFORMATION
  Report Type: Spontaneous
  Country: CZ (occurrence: CZ)
  Receive Date: 20131112
  Receipt Date: 20131112
  Transmission Date: 20140711
  Serious: Yes (Death)
  Sender: FDA-Public Use
  Company Number: CZ-PFIZER INC-2013321819

PATIENT
  Sex: Male

DRUGS (1)
  1. ACCUZIDE [Suspect]

REACTIONS (1)
  - Death [Fatal]
